FAERS Safety Report 8473796-X (Version None)
Quarter: 2012Q2

REPORT INFORMATION
  Report Type: 
  Country: None (occurrence: None)
  Receive Date: 20120628
  Receipt Date: 20120403
  Transmission Date: 20120825
  Serious: Yes (Other)
  Sender: FDA-Public Use
  Company Number: US-MYLANLABS-2011S1023721

PATIENT
  Age: 50 Year
  Sex: Female

DRUGS (6)
  1. NAVANE [Concomitant]
  2. CLOZAPINE [Suspect]
     Indication: SCHIZOPHRENIA
     Dates: end: 20120326
  3. CELEXA [Concomitant]
  4. TRAZODONE HCL [Concomitant]
  5. CLOZAPINE [Suspect]
     Dates: start: 20120327, end: 20120328
  6. ATIVAN [Concomitant]

REACTIONS (2)
  - LEUKOPENIA [None]
  - GRANULOCYTOPENIA [None]
